FAERS Safety Report 8380547-6 (Version None)
Quarter: 2012Q2

REPORT INFORMATION
  Report Type: 
  Country: None (occurrence: None)
  Receive Date: 20120523
  Receipt Date: 20120515
  Transmission Date: 20120825
  Serious: Yes (Other)
  Sender: FDA-Public Use
  Company Number: JP-VERTEX PHARMACEUTICALS INC.-AE-2012-004095

PATIENT
  Age: 68 Year
  Sex: Male

DRUGS (5)
  1. REBETOL [Concomitant]
     Route: 048
     Dates: start: 20120417, end: 20120515
  2. TELAVIC (TELAPREVIR) [Suspect]
     Indication: HEPATITIS C
     Route: 048
     Dates: start: 20120306, end: 20120515
  3. TSUMARA JUZENTAIHOTO EXTRACT GRANULES [Concomitant]
     Route: 048
  4. PEGINTERFERON ALFA-2A [Concomitant]
     Indication: HEPATITIS C
     Route: 051
     Dates: start: 20120306, end: 20120515
  5. REBETOL [Concomitant]
     Indication: HEPATITIS C
     Route: 048
     Dates: start: 20120306, end: 20120416

REACTIONS (3)
  - LOSS OF CONSCIOUSNESS [None]
  - HAEMOGLOBIN DECREASED [None]
  - RENAL IMPAIRMENT [None]
